FAERS Safety Report 9225441 (Version 2)
Quarter: 2013Q2

REPORT INFORMATION
  Report Type: Spontaneous
  Country: ZA (occurrence: None)
  Receive Date: 20130409
  Receipt Date: 20130426
  Transmission Date: 20140414
  Serious: Yes (Other)
  Sender: FDA-Public Use
  Company Number: AUR-APL-2013-02851

PATIENT
  Age: 124 Month
  Sex: Male

DRUGS (15)
  1. EFAVIRENZ [Suspect]
     Indication: TUBERCULOSIS
  2. LAMIVUDINE [Suspect]
     Indication: ANTIRETROVIRAL THERAPY
  3. STAVUDINE [Suspect]
     Indication: ANTIRETROVIRAL THERAPY
  4. ZIDOVUDINE (ZIDOVUDINE) [Suspect]
     Indication: ANTIRETROVIRAL THERAPY
  5. AMOXICILLIN+CLAVULANIC ACID [Suspect]
     Indication: TUBERCULOSIS
  6. LINEZOLID [Suspect]
     Indication: TUBERCULOSIS
  7. ISONIAZID [Suspect]
     Indication: TUBERCULOSIS
  8. PYRAZINAMIDE [Suspect]
     Indication: TUBERCULOSIS
  9. CAPREOMYCIN [Suspect]
     Indication: TUBERCULOSIS
  10. ETHIONAMIDE [Suspect]
     Indication: TUBERCULOSIS
  11. TERIZIDONE [Suspect]
     Indication: TUBERCULOSIS
  12. CLARITHROMYCIN (CLARITHROMYCIN) [Suspect]
     Indication: TUBERCULOSIS
  13. PYRIDOXINE (PYRIDOXINE) [Concomitant]
  14. PARA-AMINOSALICYLIC ACID [Suspect]
  15. EFAVIRENZ [Suspect]

REACTIONS (5)
  - Pancreatitis [None]
  - Tuberculosis [None]
  - Anaemia [None]
  - Pancreatitis chronic [None]
  - Hypothyroidism [None]
